FAERS Safety Report 18625375 (Version 1)
Quarter: 2020Q4

REPORT INFORMATION
  Report Type: Spontaneous
  Country: US (occurrence: US)
  Receive Date: 20201216
  Receipt Date: 20201216
  Transmission Date: 20210114
  Serious: No
  Sender: FDA-Public Use
  Company Number: US-CATALYST PHARMACEUTICALS, INC-2020CAT00572

PATIENT
  Age: 57 Year
  Sex: Male

DRUGS (5)
  1. FIRDAPSE [Suspect]
     Active Substance: AMIFAMPRIDINE PHOSPHATE
     Dosage: 20 MG, 3X/DAY (2 IN THE MORNING, 2 IN THE AFTERNOON, AND 2 AT NIGHT)
     Route: 048
     Dates: start: 2020
  2. FIRDAPSE [Suspect]
     Active Substance: AMIFAMPRIDINE PHOSPHATE
     Indication: MYASTHENIC SYNDROME
     Dosage: 20 MG, 1X/DAY IN THE MORNING
     Route: 048
     Dates: start: 20201028, end: 2020
  3. UNSPECIFIED ECZEMA MEDICATION [Suspect]
     Active Substance: UNSPECIFIED INGREDIENT
     Indication: ECZEMA
  4. ^A LOT^ OF UNSPECIFIED MEDICATIONS [Concomitant]
  5. FIRDAPSE [Suspect]
     Active Substance: AMIFAMPRIDINE PHOSPHATE
     Dosage: 15 MG, 2X/DAY IN AFTERNOON AND EVENING
     Route: 048
     Dates: start: 20201028, end: 2020

REACTIONS (3)
  - Dizziness [Unknown]
  - Pruritus [Unknown]
  - Orthostatic hypotension [Unknown]

NARRATIVE: CASE EVENT DATE: 2020
